FAERS Safety Report 13438692 (Version 1)
Quarter: 2017Q2

REPORT INFORMATION
  Report Type: Spontaneous
  Country: US (occurrence: US)
  Receive Date: 20170413
  Receipt Date: 20170413
  Transmission Date: 20170830
  Serious: Yes (Other)
  Sender: FDA-Public Use
  Company Number: US-BAYER-2017-067172

PATIENT
  Age: 46 Year
  Sex: Male

DRUGS (1)
  1. SORAFENIB (RAF KINASE INHIBITOR) [Suspect]
     Active Substance: SORAFENIB
     Indication: ACUTE MYELOID LEUKAEMIA
     Dosage: 200 MG, BID

REACTIONS (3)
  - Graft versus host disease in skin [None]
  - Graft versus host disease in gastrointestinal tract [None]
  - Off label use [None]

NARRATIVE: CASE EVENT DATE: 2017
